FAERS Safety Report 19698477 (Version 1)
Quarter: 2021Q3

REPORT INFORMATION
  Report Type: Report from Study
  Country: NL (occurrence: NL)
  Receive Date: 20210813
  Receipt Date: 20210813
  Transmission Date: 20211014
  Serious: No
  Sender: FDA-Public Use
  Company Number: NL-RECORDATI-2021003125

PATIENT

DRUGS (3)
  1. SIGNIFOR LAR [Suspect]
     Active Substance: PASIREOTIDE PAMOATE
     Indication: ACROMEGALY
     Dosage: 1 INJECTION PER 4 WEEKS
     Route: 030
     Dates: start: 20191230
  2. SIGNIFOR LAR [Suspect]
     Active Substance: PASIREOTIDE PAMOATE
     Dosage: 1 INJECTION PER 4 WEEKS
     Route: 030
     Dates: start: 20210712
  3. SIGNIFOR LAR [Suspect]
     Active Substance: PASIREOTIDE PAMOATE
     Dosage: 1 INJECTION PER 4 WEEKS
     Route: 030
     Dates: start: 20210614

REACTIONS (1)
  - Exposure during pregnancy [Recovered/Resolved]
